FAERS Safety Report 9239264 (Version 1)
Quarter: 2013Q2

REPORT INFORMATION
  Report Type: Spontaneous
  Country: US (occurrence: US)
  Receive Date: 20130418
  Receipt Date: 20130418
  Transmission Date: 20140414
  Serious: No
  Sender: FDA-Public Use
  Company Number: US-SANOFI-AVENTIS-2012SA051821

PATIENT
  Age: 45 Year
  Sex: Female

DRUGS (1)
  1. LOVENOX [Suspect]
     Indication: THROMBOSIS
     Route: 065
     Dates: start: 20120719

REACTIONS (4)
  - Injury associated with device [Unknown]
  - Injection site nodule [Not Recovered/Not Resolved]
  - Injection site swelling [Recovering/Resolving]
  - Underdose [Unknown]
